FAERS Safety Report 21767506 (Version 2)
Quarter: 2023Q1

REPORT INFORMATION
  Report Type: Spontaneous
  Country: US (occurrence: US)
  Receive Date: 20221222
  Receipt Date: 20230214
  Transmission Date: 20230417
  Serious: No
  Sender: FDA-Public Use
  Company Number: US-AMRYT PHARMACEUTICALS DAC-AEGR006034

PATIENT
  Sex: Female
  Weight: 50.794 kg

DRUGS (28)
  1. MYALEPT [Suspect]
     Active Substance: METRELEPTIN
     Indication: Lipodystrophy acquired
     Dosage: 5 MILLIGRAM 1 ML OR 100 UNITS, BID
     Route: 058
     Dates: start: 2013
  2. BACTERIOSTATIC WATER [Concomitant]
     Active Substance: WATER
     Indication: Product used for unknown indication
  3. NORCO [Concomitant]
     Active Substance: ACETAMINOPHEN\HYDROCODONE BITARTRATE
     Indication: Pain
     Dosage: 1 TABLET, EVERY 4 HOURS
     Route: 048
     Dates: start: 20221214
  4. TYLENOL [Concomitant]
     Active Substance: ACETAMINOPHEN
     Indication: Lumbar spinal stenosis
     Dosage: 1 TABLET, EVERY 6 HOURS
     Route: 048
     Dates: start: 20210304
  5. TYLENOL WITH CODEINE [Concomitant]
     Active Substance: ACETAMINOPHEN\CODEINE PHOSPHATE
     Indication: Product used for unknown indication
     Dosage: UNK
     Route: 048
     Dates: start: 20210519
  6. PROVENTIL HFA [SALBUTAMOL] [Concomitant]
     Indication: Dyspnoea
     Dosage: INHALE 2 PUFFS INTO LUNGS, EVERY 4 HOURS
     Dates: start: 20220614
  7. VENTOLIN HFA [Concomitant]
     Active Substance: ALBUTEROL SULFATE
     Indication: Dyspnoea
     Dosage: 36 GRAM, INHALE 2 PUFFS, EVERY 4 HOURS
     Dates: start: 20220614
  8. PROAIR HFA [Concomitant]
     Active Substance: ALBUTEROL SULFATE
     Indication: Dyspnoea
     Dosage: 3 GRAM, INHALE 2 PUFFS, EVERY 4 HOURS
     Dates: start: 20220614
  9. LACHYDRIN [Concomitant]
     Indication: Xerosis
     Dosage: 1000 GRAM, APPLY AFFECTED AREA TWICE
  10. CHOLECALCIFEROL [Concomitant]
     Active Substance: CHOLECALCIFEROL
     Indication: Product used for unknown indication
     Dosage: 2000 UNITS, QD
     Route: 048
     Dates: start: 20220407
  11. VOLTAREN [Concomitant]
     Active Substance: DICLOFENAC SODIUM
     Indication: Product used for unknown indication
     Dosage: 4 GRAM, BID
     Dates: start: 20220428
  12. CYMBALTA [Concomitant]
     Active Substance: DULOXETINE HYDROCHLORIDE
     Indication: Anxiety
     Dosage: 1 UNITS, QD
     Route: 048
     Dates: start: 20220912
  13. DRISDOL [Concomitant]
     Active Substance: ERGOCALCIFEROL
     Indication: Product used for unknown indication
     Dosage: 1.25 MILLIGRAM, ONCE WEEKLY
     Route: 048
     Dates: start: 20220407
  14. HUMULIN U [Concomitant]
     Active Substance: INSULIN HUMAN
     Indication: Type 2 diabetes mellitus
     Dosage: 250 W/ BREAKFAST, 300 WITH LUNCH, 300 WITH DINNER
     Route: 058
     Dates: start: 20220510
  15. XYLOCAINE [Concomitant]
     Active Substance: LIDOCAINE HYDROCHLORIDE
     Indication: Arthralgia
     Dosage: APPLY 3 TIMES DAILY AS NEEDED
     Dates: start: 20220428
  16. CLARITIN [Concomitant]
     Active Substance: LORATADINE
     Indication: Asthma
     Dosage: 1 TABLET, QD
     Route: 048
     Dates: start: 20220912
  17. MAGNESIUM OXIDE [Concomitant]
     Active Substance: MAGNESIUM OXIDE
     Indication: Product used for unknown indication
     Dosage: 1 TABLET, QD
     Route: 048
     Dates: start: 20210112
  18. PROTONIX [Concomitant]
     Active Substance: PANTOPRAZOLE SODIUM
     Indication: Gastrooesophageal reflux disease
     Dosage: 1 TABLET, BID
     Route: 048
     Dates: start: 20220405
  19. ZOFRAN [Concomitant]
     Active Substance: ONDANSETRON HYDROCHLORIDE
     Indication: Nausea
     Dosage: 1 TABLET EVERY 8 HOURS
     Dates: start: 20220912
  20. AUGMENTIN [Concomitant]
     Active Substance: AMOXICILLIN\CLAVULANATE POTASSIUM
     Indication: Product used for unknown indication
     Dosage: 1 TABLET EVERY 12 HOURS FOR 7 DAYS
     Dates: start: 20221214
  21. LIPITOR [Concomitant]
     Active Substance: ATORVASTATIN CALCIUM
     Indication: Dyslipidaemia
     Dosage: 1 TABLET ONCE EVERY NIGHT AT BEDTIME
     Route: 048
     Dates: start: 20220912
  22. LIPITOR [Concomitant]
     Active Substance: ATORVASTATIN CALCIUM
     Indication: Type 2 diabetes mellitus
  23. PRINIVIL [Concomitant]
     Active Substance: LISINOPRIL
     Indication: Type 2 diabetes mellitus
     Dosage: 1 TABLET, QD
     Route: 048
     Dates: start: 20220912, end: 20221230
  24. ZESTRIL [Concomitant]
     Active Substance: LISINOPRIL
     Indication: Type 2 diabetes mellitus
     Dosage: 1 TABLET, QD
     Route: 048
     Dates: start: 20220912, end: 20221230
  25. MIRALAX [Concomitant]
     Active Substance: POLYETHYLENE GLYCOL 3350
     Indication: Product used for unknown indication
     Dosage: 17 GRAM WITH 8 OZ OF LIQUID DRINK ONCE DAILY
     Dates: start: 20221219
  26. LYRICA [Concomitant]
     Active Substance: PREGABALIN
     Indication: Product used for unknown indication
     Route: 048
  27. ATARAX [Concomitant]
     Active Substance: HYDROXYZINE HYDROCHLORIDE
     Indication: Anxiety
     Dosage: 25 MILLIGRAM, QD
     Route: 048
  28. ATARAX [Concomitant]
     Active Substance: HYDROXYZINE HYDROCHLORIDE
     Indication: Pruritus

REACTIONS (4)
  - Pain [Unknown]
  - Foot deformity [Recovering/Resolving]
  - Skin ulcer [Recovering/Resolving]
  - Diabetic foot [Recovering/Resolving]
